FAERS Safety Report 4655049-0 (Version None)
Quarter: 2005Q2

REPORT INFORMATION
  Report Type: 
  Country: None (occurrence: None)
  Receive Date: 20050504
  Receipt Date: 20050420
  Transmission Date: 20051028
  Serious: Yes (Other)
  Sender: FDA-Public Use
  Company Number: 2005062940

PATIENT
  Sex: Female
  Weight: 81.6475 kg

DRUGS (10)
  1. BEXTRA [Suspect]
     Indication: BACK PAIN
     Dosage: 20 MG (20 MG, 1 IN 1 D), ORAL
     Route: 048
     Dates: start: 20020101
  2. CELEBREX [Suspect]
     Indication: BACK DISORDER
     Dates: end: 20020101
  3. KARVEA HCT (HYDROCHLOROTHIAZIDE, IRBESARTAN) [Concomitant]
  4. ADVICOR [Concomitant]
  5. PIOGLITAZONE HCL [Concomitant]
  6. OMEPRAZOLE [Concomitant]
  7. DESLORATADINE (DESLORATADINE) [Concomitant]
  8. AZELASTINE HYDROCHLORIDE (AZELASTINE HYDROCHLORIDE) [Concomitant]
  9. ALENDRONATE SODIUM [Concomitant]
  10. ALLERGY MEDICATION (ALLERGY MEDICATION) [Concomitant]

REACTIONS (9)
  - ABDOMINAL PAIN UPPER [None]
  - ARTHRALGIA [None]
  - BACK PAIN [None]
  - BLOOD CHOLESTEROL INCREASED [None]
  - DIABETES MELLITUS INADEQUATE CONTROL [None]
  - GASTROINTESTINAL DISORDER [None]
  - HAEMATOCHEZIA [None]
  - INTERVERTEBRAL DISC PROTRUSION [None]
  - MITRAL VALVE PROLAPSE [None]
